FAERS Safety Report 19505011 (Version 3)
Quarter: 2021Q3

REPORT INFORMATION
  Report Type: Spontaneous
  Country: US (occurrence: US)
  Receive Date: 20210707
  Receipt Date: 20210830
  Transmission Date: 20211014
  Serious: Yes (Disabling)
  Sender: FDA-Public Use
  Company Number: US-SA-2021SA221705

PATIENT
  Age: 72 Year
  Sex: Female

DRUGS (13)
  1. MICROLET [ETHINYLESTRADIOL;GESTODENE] [Concomitant]
  2. DUPIXENT [Suspect]
     Active Substance: DUPILUMAB
     Dosage: 300 MG, QOW
     Route: 058
     Dates: start: 20210519
  3. CLONIDINE. [Concomitant]
     Active Substance: CLONIDINE
  4. DILT [Concomitant]
  5. AZELASTINE. [Concomitant]
     Active Substance: AZELASTINE HYDROCHLORIDE
     Dosage: UNK
  6. BENZONATATE. [Concomitant]
     Active Substance: BENZONATATE
  7. LISINOPRIL. [Concomitant]
     Active Substance: LISINOPRIL
  8. TRESIBA [Concomitant]
     Active Substance: INSULIN DEGLUDEC
  9. DUPIXENT [Suspect]
     Active Substance: DUPILUMAB
     Indication: ASTHMA
     Dosage: 200 MG, QOW
     Route: 058
  10. HYDROCHLOROTHIAZIDE. [Concomitant]
     Active Substance: HYDROCHLOROTHIAZIDE
  11. METFORMIN [Concomitant]
     Active Substance: METFORMIN HYDROCHLORIDE
  12. PREDNISONE. [Concomitant]
     Active Substance: PREDNISONE
  13. INSULINA LISPRO [Concomitant]
     Active Substance: INSULIN LISPRO

REACTIONS (5)
  - Product use issue [Unknown]
  - Therapeutic response shortened [Not Recovered/Not Resolved]
  - Impaired work ability [Not Recovered/Not Resolved]
  - Therapeutic response unexpected [Unknown]
  - Cough [Not Recovered/Not Resolved]

NARRATIVE: CASE EVENT DATE: 20210601
